FAERS Safety Report 6600235-3 (Version None)
Quarter: 2010Q1

REPORT INFORMATION
  Report Type: 
  Country: None (occurrence: None)
  Receive Date: 20100217
  Receipt Date: 20100202
  Transmission Date: 20100710
  Serious: Yes (Hospitalization)
  Sender: FDA-Public Use
  Company Number: MYCO20100001

PATIENT
  Age: 49 Year
  Sex: Male

DRUGS (3)
  1. MYCOPHENOLATE MOFETIL [Suspect]
     Indication: DRUG USE FOR UNKNOWN INDICATION
     Dosage: 2 G/DAY, ORAL
     Route: 048
  2. PREDNISOLONE [Suspect]
     Indication: DRUG USE FOR UNKNOWN INDICATION
     Dosage: 30 MG DAILY; 20 MG DAILY; 5 MG DAILY
  3. CYCLOSPORINE [Suspect]
     Indication: DRUG USE FOR UNKNOWN INDICATION
     Dosage: 300 MG DAILY; 250 MG DAILY

REACTIONS (7)
  - ANOGENITAL WARTS [None]
  - BLOOD CREATININE INCREASED [None]
  - CYTOMEGALOVIRUS INFECTION [None]
  - HERPES ZOSTER [None]
  - KIDNEY TRANSPLANT REJECTION [None]
  - OSTEOMA [None]
  - POST PROCEDURAL COMPLICATION [None]
